FAERS Safety Report 18193338 (Version 1)
Quarter: 2020Q3

REPORT INFORMATION
  Report Type: Spontaneous
  Country: IN (occurrence: IN)
  Receive Date: 20200825
  Receipt Date: 20200825
  Transmission Date: 20201103
  Serious: Yes (Other)
  Sender: FDA-Public Use
  Company Number: IN-MACLEODS PHARMACEUTICALS US LTD-MAC2020027769

PATIENT

DRUGS (2)
  1. TRIAMCINOLONE ACETONIDE. [Suspect]
     Active Substance: TRIAMCINOLONE ACETONIDE
     Indication: DIABETIC RETINAL OEDEMA
     Dosage: 20 MILLIGRAM, SINGLE, INJECTION, 20?GAUGE VEINFLOW CANULA IN RE
     Route: 047
  2. INSULIN [Concomitant]
     Active Substance: INSULIN NOS
     Indication: DIABETES MELLITUS
     Dosage: UNK
     Route: 065

REACTIONS (4)
  - Orbital infection [Recovering/Resolving]
  - Staphylococcal infection [Recovering/Resolving]
  - Conjunctival ulcer [Recovering/Resolving]
  - Corneal infiltrates [Recovering/Resolving]
